FAERS Safety Report 7059601-7 (Version None)
Quarter: 2010Q4

REPORT INFORMATION
  Report Type: 
  Country: None (occurrence: None)
  Receive Date: 20101025
  Receipt Date: 20100527
  Transmission Date: 20110411
  Serious: Yes (Hospitalization)
  Sender: FDA-Public Use
  Company Number: US-ASTRAZENECA-2010SE50137

PATIENT
  Age: 464 Month
  Sex: Female

DRUGS (2)
  1. SEROQUEL [Suspect]
     Indication: DEPRESSION
     Route: 048
     Dates: start: 20060104
  2. RISPERDAL [Concomitant]
     Dates: start: 20070301

REACTIONS (6)
  - BACK PAIN [None]
  - DIABETES MELLITUS [None]
  - PARAESTHESIA [None]
  - POST-TRAUMATIC STRESS DISORDER [None]
  - SCHIZOAFFECTIVE DISORDER [None]
  - TOOTH ABSCESS [None]
